FAERS Safety Report 8345768-7 (Version None)
Quarter: 2012Q2

REPORT INFORMATION
  Report Type: 
  Country: None (occurrence: None)
  Receive Date: 20120508
  Receipt Date: 20120425
  Transmission Date: 20120825
  Serious: Yes (Hospitalization)
  Sender: FDA-Public Use
  Company Number: DE-ELI_LILLY_AND_COMPANY-DE201204008922

PATIENT
  Age: 65 Year
  Sex: Male

DRUGS (3)
  1. FORTEO [Suspect]
     Indication: OSTEOPOROSIS
     Dosage: UNK, QD
     Route: 058
     Dates: start: 20110712
  2. NOVALGIN                           /00169801/ [Concomitant]
  3. CALCIUM [Concomitant]
     Dosage: UNK, QD

REACTIONS (6)
  - SKELETAL INJURY [None]
  - CATARACT [None]
  - CARDIOVASCULAR DISORDER [None]
  - FATIGUE [None]
  - NAUSEA [None]
  - DIZZINESS [None]
